FAERS Safety Report 17147677 (Version 1)
Quarter: 2019Q4

REPORT INFORMATION
  Report Type: Spontaneous
  Country: NL (occurrence: DE)
  Receive Date: 20191212
  Receipt Date: 20191212
  Transmission Date: 20200122
  Serious: Yes (Hospitalization)
  Sender: FDA-Public Use
  Company Number: DE-BAYER-2019-218923

PATIENT
  Age: 35 Year
  Sex: Female
  Weight: 57 kg

DRUGS (1)
  1. KYLEENA [Suspect]
     Active Substance: LEVONORGESTREL
     Indication: CONTRACEPTION
     Dosage: 19,5 LEVONORGESTREL
     Route: 015
     Dates: start: 20190521, end: 20191112

REACTIONS (13)
  - Alopecia [Recovering/Resolving]
  - Angina pectoris [Recovering/Resolving]
  - Abdominal distension [Unknown]
  - Vaginal haemorrhage [Unknown]
  - Palpitations [Recovering/Resolving]
  - Facial paralysis [Recovered/Resolved]
  - Headache [Recovering/Resolving]
  - Gastrointestinal disorder [Recovering/Resolving]
  - Nausea [Recovering/Resolving]
  - Restlessness [Recovering/Resolving]
  - Dizziness [Recovering/Resolving]
  - Middle insomnia [Unknown]
  - Sleep disorder [Recovering/Resolving]

NARRATIVE: CASE EVENT DATE: 201910
